FAERS Safety Report 9094624 (Version 2)
Quarter: 2013Q2

REPORT INFORMATION
  Report Type: Report from Study
  Country: US (occurrence: US)
  Receive Date: 20130219
  Receipt Date: 20130523
  Transmission Date: 20140414
  Serious: Yes (Hospitalization, Other)
  Sender: FDA-Public Use
  Company Number: US-PFIZER INC-2012297818

PATIENT
  Age: 9 Year
  Sex: Male

DRUGS (7)
  1. METHOTREXATE SODIUM [Suspect]
     Indication: ACUTE LYMPHOCYTIC LEUKAEMIA
     Dosage: 5250 MG, UNK
     Route: 042
     Dates: start: 20121006, end: 20130116
  2. CYTARABINE [Suspect]
     Indication: ACUTE LYMPHOCYTIC LEUKAEMIA
     Dosage: UNK
  3. ETOPOSIDE [Suspect]
     Indication: ACUTE LYMPHOCYTIC LEUKAEMIA
     Dosage: UNK
     Dates: start: 20121027, end: 20121031
  4. DOXORUBICIN HCL [Suspect]
     Indication: ACUTE LYMPHOCYTIC LEUKAEMIA
     Dosage: 25 MG, 1 DAY
     Route: 042
     Dates: start: 20121212
  5. IFOSFAMIDE [Suspect]
     Indication: ACUTE LYMPHOCYTIC LEUKAEMIA
     Dosage: 840 MG, THERAPY DURATION: CONTINUED
     Route: 042
     Dates: start: 20121007, end: 20121009
  6. DASATINIB [Suspect]
     Indication: ACUTE LYMPHOCYTIC LEUKAEMIA
     Dosage: UNK
  7. DAUNORUBICIN [Suspect]
     Indication: ACUTE LYMPHOCYTIC LEUKAEMIA
     Dosage: 16 MG, UNK
     Route: 042
     Dates: start: 20121010, end: 20121011

REACTIONS (4)
  - Cerebral ischaemia [Recovered/Resolved]
  - Febrile neutropenia [Recovered/Resolved]
  - Neutropenia [Recovered/Resolved]
  - Pyrexia [Recovered/Resolved]
